FAERS Safety Report 7388408-6 (Version None)
Quarter: 2011Q2

REPORT INFORMATION
  Report Type: 
  Country: None (occurrence: None)
  Receive Date: 20110401
  Receipt Date: 20110328
  Transmission Date: 20111010
  Serious: Yes (Death, Other)
  Sender: FDA-Public Use
  Company Number: PHHY2011JP25744

PATIENT
  Sex: Male
  Weight: 55 kg

DRUGS (11)
  1. VALSARTAN [Suspect]
     Indication: HYPERTENSION
     Dosage: 80 MG, QD
     Route: 048
     Dates: start: 20090119
  2. FERROUS CITRATE [Concomitant]
     Dosage: 100 MG, UNK
     Route: 048
     Dates: start: 20080526, end: 20081020
  3. TICLOPIDINE HCL [Concomitant]
     Dosage: 100 MG, UNK
     Route: 048
     Dates: start: 20080526, end: 20100405
  4. BASEN [Concomitant]
     Dosage: 0.6 MG, UNK
     Route: 048
     Dates: start: 20080526, end: 20090401
  5. SELBEX [Concomitant]
     Dosage: 50 MG, UNK
     Route: 048
     Dates: start: 20080526, end: 20100405
  6. AMARYL [Concomitant]
     Dosage: 2 MG, UNK
     Route: 048
     Dates: start: 20080526, end: 20090401
  7. NORVASC [Concomitant]
     Dosage: 5 MG, UNK
     Route: 048
     Dates: start: 20080526, end: 20100405
  8. DIGOXIN [Concomitant]
     Dosage: 01125 MG, UNK
     Route: 048
     Dates: start: 20080526, end: 20100405
  9. ALLORINE [Concomitant]
     Dosage: 100 MG, UNK
     Route: 048
     Dates: start: 20080526, end: 20100405
  10. CISDYNE [Concomitant]
     Dosage: 750 MG, UNK
     Route: 048
     Dates: start: 20080526, end: 20090405
  11. PARIET [Concomitant]
     Dosage: 10 MG, UNK
     Route: 048
     Dates: start: 20090401, end: 20090405

REACTIONS (2)
  - DEATH [None]
  - BLOOD PRESSURE DIASTOLIC DECREASED [None]
